FAERS Safety Report 7307226-8 (Version None)
Quarter: 2011Q1

REPORT INFORMATION
  Report Type: 
  Country: None (occurrence: None)
  Receive Date: 20110223
  Receipt Date: 20110215
  Transmission Date: 20110831
  Serious: Yes (Other)
  Sender: FDA-Public Use
  Company Number: US-PFIZER INC-2010145401

PATIENT
  Sex: Male

DRUGS (3)
  1. SENOKOT [Concomitant]
     Indication: CONSTIPATION
     Dosage: UNK
  2. XALATAN [Suspect]
     Indication: GLAUCOMA
     Dosage: ONE DROP IN BOTH EYES DAILY AT BEDTIME
     Route: 047
     Dates: start: 20100324
  3. HALDOL [Concomitant]
     Indication: AGITATION
     Dosage: 2 MG/ML, 1 ML EVERY 4 HOURS AS NEEDED
     Route: 048
     Dates: start: 20100318

REACTIONS (1)
  - CONJUNCTIVITIS [None]
